FAERS Safety Report 21733382 (Version 1)
Quarter: 2022Q4

REPORT INFORMATION
  Report Type: Spontaneous
  Country: US (occurrence: None)
  Receive Date: 20221214
  Receipt Date: 20221214
  Transmission Date: 20230113
  Serious: No
  Sender: FDA-Public Use
  Company Number: None

PATIENT
  Sex: Female
  Weight: 59.4 kg

DRUGS (5)
  1. IBRANCE [Suspect]
     Active Substance: PALBOCICLIB
     Indication: Breast cancer female
     Dosage: OTHER FREQUENCY : DAILY X 21 DAYS;?
     Route: 048
     Dates: start: 20220822
  2. METHENAMINE MANDELATE [Suspect]
     Active Substance: METHENAMINE MANDELATE
     Indication: Antibiotic prophylaxis
  3. JANUVIA [Concomitant]
     Active Substance: SITAGLIPTIN PHOSPHATE
  4. PEPCID AC [Concomitant]
     Active Substance: FAMOTIDINE
  5. ZYRTEC [Concomitant]
     Active Substance: CETIRIZINE HYDROCHLORIDE

REACTIONS (3)
  - Pollakiuria [None]
  - Bladder disorder [None]
  - Renal artery stent placement [None]
